FAERS Safety Report 25958730 (Version 1)
Quarter: 2025Q4

REPORT INFORMATION
  Report Type: Spontaneous
  Country: US (occurrence: US)
  Receive Date: 20251024
  Receipt Date: 20251024
  Transmission Date: 20260117
  Serious: Yes (Hospitalization, Other)
  Sender: ALEXION PHARMACEUTICALS
  Company Number: US-AstraZeneca-CH-00977106A

PATIENT
  Sex: Male

DRUGS (2)
  1. BREZTRI [Suspect]
     Active Substance: BUDESONIDE\FORMOTEROL\GLYCOPYRROLATE
     Route: 065
  2. ATROVENT [Concomitant]
     Active Substance: IPRATROPIUM BROMIDE
     Route: 065

REACTIONS (6)
  - Pneumonia [Unknown]
  - Chronic lymphocytic leukaemia [Unknown]
  - Chronic obstructive pulmonary disease [Unknown]
  - Forced expiratory volume abnormal [Unknown]
  - Oxygen saturation decreased [Unknown]
  - Dyspnoea [Unknown]
